FAERS Safety Report 20129350 (Version 2)
Quarter: 2021Q4

REPORT INFORMATION
  Report Type: Spontaneous
  Country: US (occurrence: US)
  Receive Date: 20211130
  Receipt Date: 20211229
  Transmission Date: 20220304
  Serious: No
  Sender: FDA-Public Use
  Company Number: US-ASTELLAS-2021US045710

PATIENT
  Age: 89 Year
  Sex: Female

DRUGS (2)
  1. MYRBETRIQ [Suspect]
     Active Substance: MIRABEGRON
     Indication: Nocturia
     Route: 065
  2. MYRBETRIQ [Suspect]
     Active Substance: MIRABEGRON
     Indication: Nocturia
     Route: 065

REACTIONS (3)
  - Fatigue [Unknown]
  - Hepatic function abnormal [Unknown]
  - Off label use [Unknown]
